FAERS Safety Report 23773365 (Version 1)
Quarter: 2024Q2

REPORT INFORMATION
  Report Type: Spontaneous
  Country: CA (occurrence: CA)
  Receive Date: 20240423
  Receipt Date: 20240423
  Transmission Date: 20240715
  Serious: Yes (Hospitalization, Other)
  Sender: FDA-Public Use
  Company Number: CA-PFIZER INC-202300307976

PATIENT
  Age: 63 Year
  Sex: Male

DRUGS (12)
  1. RUXIENCE [Suspect]
     Active Substance: RITUXIMAB-PVVR
     Indication: Microscopic polyangiitis
     Dosage: 1 DF (DOSAGE INFO: UNKNOWN)
     Route: 042
     Dates: start: 20230914, end: 20230914
  2. RUXIENCE [Suspect]
     Active Substance: RITUXIMAB-PVVR
     Indication: Granulomatosis with polyangiitis
     Dosage: 900 MG, SINGLE DOSING (AS PER PRESCRIPTION THE PATIENT SHOULD RECEIVE 1000 MG.)
     Route: 042
     Dates: start: 20231005, end: 20231005
  3. AMLODIPINE [Concomitant]
     Active Substance: AMLODIPINE BESYLATE
     Dosage: UNK
  4. AMOXICILLIN\CLAVULANATE POTASSIUM [Concomitant]
     Active Substance: AMOXICILLIN\CLAVULANATE POTASSIUM
     Dosage: UNK
  5. ASPIRIN [Concomitant]
     Active Substance: ASPIRIN
     Dosage: UNK
  6. BISOPROLOL [Concomitant]
     Active Substance: BISOPROLOL\BISOPROLOL FUMARATE
     Dosage: UNK
  7. FLUCONAZOLE [Concomitant]
     Active Substance: FLUCONAZOLE
     Dosage: UNK
  8. FOLIC ACID [Concomitant]
     Active Substance: FOLIC ACID
     Dosage: UNK
  9. PANTOPRAZOLE [Concomitant]
     Active Substance: PANTOPRAZOLE
     Dosage: UNK
  10. PREDNISONE [Concomitant]
     Active Substance: PREDNISONE
     Dosage: UNK
  11. ROSUVASTATIN [Concomitant]
     Active Substance: ROSUVASTATIN
     Dosage: UNK
  12. SULFADIAZINE\TRIMETHOPRIM [Concomitant]
     Active Substance: SULFADIAZINE\TRIMETHOPRIM
     Dosage: 40/80MG

REACTIONS (10)
  - Condition aggravated [Unknown]
  - Loss of consciousness [Unknown]
  - Hypotension [Unknown]
  - Intervertebral disc displacement [Unknown]
  - Lung disorder [Unknown]
  - Pain in extremity [Not Recovered/Not Resolved]
  - Off label use [Unknown]
  - Off label use [Unknown]
  - Intentional product use issue [Unknown]
  - Incorrect dose administered [Unknown]

NARRATIVE: CASE EVENT DATE: 20231005
